FAERS Safety Report 18676225 (Version 1)
Quarter: 2020Q4

REPORT INFORMATION
  Report Type: Other
  Country: CA (occurrence: CA)
  Receive Date: 20201229
  Receipt Date: 20201229
  Transmission Date: 20210114
  Serious: Yes (Hospitalization, Other)
  Sender: FDA-Public Use
  Company Number: CA-APOTEX-2020AP024735

PATIENT
  Age: 66 Year
  Sex: Female

DRUGS (3)
  1. LETROZOLE. [Suspect]
     Active Substance: LETROZOLE
     Indication: PRODUCT USED FOR UNKNOWN INDICATION
     Dosage: UNK
     Route: 065
  2. KISQALI [Suspect]
     Active Substance: RIBOCICLIB
     Indication: BREAST CANCER METASTATIC
     Dosage: 400 MILLIGRAM
     Route: 048
  3. KISQALI [Suspect]
     Active Substance: RIBOCICLIB
     Dosage: UNK
     Route: 048

REACTIONS (9)
  - Emotional disorder [Unknown]
  - Peripheral swelling [Unknown]
  - Influenza [Unknown]
  - Full blood count decreased [Unknown]
  - Malaise [Unknown]
  - Hyperhidrosis [Unknown]
  - Pruritus [Unknown]
  - Neutrophil count decreased [Unknown]
  - Alanine aminotransferase increased [Unknown]
